FAERS Safety Report 24854113 (Version 2)
Quarter: 2025Q3

REPORT INFORMATION
  Report Type: Spontaneous
  Country: CN (occurrence: CN)
  Receive Date: 20250117
  Receipt Date: 20250810
  Transmission Date: 20251021
  Serious: Yes (Other)
  Sender: ALEXION PHARMACEUTICALS
  Company Number: CN-ASTRAZENECA-202501GLO008044CN

PATIENT
  Age: 58 Year
  Sex: Male

DRUGS (4)
  1. GEFITINIB [Suspect]
     Active Substance: GEFITINIB
     Indication: Lung adenocarcinoma stage IV
     Dosage: 250 MILLIGRAM, QD
     Route: 065
     Dates: start: 202210
  2. GEFITINIB [Suspect]
     Active Substance: GEFITINIB
     Route: 065
  3. AUMOLERTINIB [Suspect]
     Active Substance: AUMOLERTINIB
     Indication: Lung adenocarcinoma stage IV
     Route: 065
  4. LAROTRECTINIB [Suspect]
     Active Substance: LAROTRECTINIB
     Indication: Lung adenocarcinoma stage IV
     Dosage: 100 MILLIGRAM, BID
     Dates: start: 202306

REACTIONS (4)
  - Drug resistance mutation [Unknown]
  - Dermatitis [Recovered/Resolved]
  - Drug resistance [Unknown]
  - Malignant neoplasm progression [Unknown]
